FAERS Safety Report 5375569-3 (Version None)
Quarter: 2007Q2

REPORT INFORMATION
  Report Type: 
  Country: None (occurrence: None)
  Receive Date: 20070629
  Receipt Date: 20070619
  Transmission Date: 20071010
  Serious: Yes (Other)
  Sender: FDA-Public Use
  Company Number: US-PFIZER INC-2007051428

PATIENT
  Sex: Female
  Weight: 95.45 kg

DRUGS (23)
  1. LIPITOR [Interacting]
  2. CICLOPIROX [Suspect]
     Indication: ONYCHOMYCOSIS
     Dates: start: 20050821, end: 20060101
  3. LANSOPRAZOLE [Concomitant]
  4. VICODIN [Concomitant]
  5. ZOLPIDEM TARTRATE [Concomitant]
  6. ERGOCALCIFEROL [Concomitant]
  7. ASCORBIC ACID [Concomitant]
  8. FOLIC ACID [Concomitant]
  9. THIAMINE [Concomitant]
  10. RETINOL [Concomitant]
  11. RIBOFLAVIN [Concomitant]
  12. NICOTINAMIDE [Concomitant]
  13. PANTHENOL [Concomitant]
  14. METAXALONE [Concomitant]
  15. ESTRADIOL [Concomitant]
  16. CLARITHROMYCIN [Concomitant]
  17. GUAIFENESIN [Concomitant]
  18. PHENYLPROPANOLAMINE [Concomitant]
  19. TRIAMCINOLONE ACETONIDE [Concomitant]
  20. CETIRIZINE HYDROCHLORIDE [Concomitant]
  21. OSELTAMIVIR [Concomitant]
  22. RANITIDINE [Concomitant]
  23. ALLEGRA D 24 HOUR [Concomitant]

REACTIONS (19)
  - ALDOLASE INCREASED [None]
  - ANOREXIA [None]
  - ANTINUCLEAR ANTIBODY [None]
  - ASTHENIA [None]
  - BLOOD CREATINE PHOSPHOKINASE INCREASED [None]
  - CARPAL TUNNEL SYNDROME [None]
  - DERMATOMYOSITIS [None]
  - DRUG INTERACTION [None]
  - FIBROMYALGIA [None]
  - HYPERSENSITIVITY [None]
  - HYPOAESTHESIA [None]
  - HYPOTONIA [None]
  - LARYNGITIS [None]
  - LIVER FUNCTION TEST ABNORMAL [None]
  - POLYP [None]
  - RASH GENERALISED [None]
  - TENDONITIS [None]
  - TRIGGER FINGER [None]
  - WEIGHT DECREASED [None]
